FAERS Safety Report 7510946-3 (Version None)
Quarter: 2011Q2

REPORT INFORMATION
  Report Type: 
  Country: None (occurrence: None)
  Receive Date: 20110531
  Receipt Date: 20110521
  Transmission Date: 20111010
  Serious: Yes (Hospitalization)
  Sender: FDA-Public Use
  Company Number: US-BRISTOL-MYERS SQUIBB COMPANY-15769177

PATIENT
  Age: 60 Year
  Sex: Male
  Weight: 68 kg

DRUGS (6)
  1. ERBITUX [Suspect]
     Indication: NON-SMALL CELL LUNG CANCER
     Dosage: HELD ON 92 DAYS. 250/M2.
     Dates: end: 20110502
  2. CARBOPLATIN [Suspect]
     Indication: NON-SMALL CELL LUNG CANCER
     Dosage: AUC= 2.
     Dates: start: 20110418
  3. PRILOSEC [Concomitant]
     Route: 048
  4. CARAFATE [Concomitant]
     Route: 048
  5. MOBIC [Suspect]
     Route: 048
  6. TAXOL [Suspect]
     Indication: NON-SMALL CELL LUNG CANCER
     Dosage: DELAY 20DAYS. 45 MG/M2.
     Dates: end: 20110314

REACTIONS (3)
  - OESOPHAGITIS [None]
  - PANCYTOPENIA [None]
  - NEUTROPENIA [None]
